FAERS Safety Report 11716619 (Version 2)
Quarter: 2015Q4

REPORT INFORMATION
  Report Type: Spontaneous
  Country: US (occurrence: US)
  Receive Date: 20151104
  Receipt Date: 20151110
  Transmission Date: 20160304
  Serious: No
  Sender: FDA-Public Use
  Company Number: US-ELI_LILLY_AND_COMPANY-US201108006055

PATIENT
  Age: 89 Year
  Sex: Female

DRUGS (3)
  1. FORTEO [Suspect]
     Active Substance: TERIPARATIDE
     Dosage: 20 UG, QD
  2. FORTEO [Suspect]
     Active Substance: TERIPARATIDE
     Indication: OSTEOPOROSIS
     Dosage: 20 UG, QD
     Dates: start: 20110726
  3. FORTEO [Suspect]
     Active Substance: TERIPARATIDE
     Dosage: 20 UG, QD

REACTIONS (16)
  - Swelling [Unknown]
  - Discomfort [Unknown]
  - Pain [Unknown]
  - Dizziness [Recovered/Resolved]
  - Spinal disorder [Unknown]
  - Injection site bruising [Unknown]
  - Injection site erythema [Recovering/Resolving]
  - Weight gain poor [Unknown]
  - Posture abnormal [Unknown]
  - Injection site swelling [Unknown]
  - Asthma [Unknown]
  - Head discomfort [Unknown]
  - Visual impairment [Unknown]
  - Overdose [Unknown]
  - Anxiety [Unknown]
  - Injection site pain [Unknown]

NARRATIVE: CASE EVENT DATE: 20110726
